FAERS Safety Report 17037146 (Version 1)
Quarter: 2019Q4

REPORT INFORMATION
  Report Type: Spontaneous
  Country: US (occurrence: US)
  Receive Date: 20191115
  Receipt Date: 20191115
  Transmission Date: 20200122
  Serious: No
  Sender: FDA-Public Use
  Company Number: US-NOVOPROD-686677

PATIENT
  Age: 71 Year
  Sex: Male

DRUGS (1)
  1. FIASP [Suspect]
     Active Substance: INSULIN ASPART
     Indication: TYPE 1 DIABETES MELLITUS
     Dosage: PUMP CALCULATES DOSE
     Route: 058
     Dates: start: 201907

REACTIONS (3)
  - Blood glucose increased [Recovering/Resolving]
  - Infusion site scar [Unknown]
  - Off label use [Unknown]
